FAERS Safety Report 9773842 (Version 5)
Quarter: 2014Q2

REPORT INFORMATION
  Report Type: Report from Study
  Country: AU (occurrence: AU)
  Receive Date: 20131220
  Receipt Date: 20140426
  Transmission Date: 20141212
  Serious: Yes (Other)
  Sender: FDA-Public Use
  Company Number: AU-ROCHE-1323167

PATIENT
  Age: 62 Year
  Sex: Female

DRUGS (5)
  1. ACTEMRA [Suspect]
     Indication: RHEUMATOID ARTHRITIS
     Route: 042
     Dates: start: 20130522
  2. ACTEMRA [Suspect]
     Route: 042
     Dates: start: 201401
  3. ACTEMRA [Suspect]
     Route: 065
  4. ACTEMRA [Suspect]
     Route: 065
     Dates: start: 20140405
  5. METHOTREXATE [Concomitant]

REACTIONS (3)
  - Diarrhoea [Recovered/Resolved]
  - Wound infection [Recovered/Resolved]
  - Underdose [Unknown]
